FAERS Safety Report 6412894-9 (Version None)
Quarter: 2009Q4

REPORT INFORMATION
  Report Type: 
  Country: None (occurrence: None)
  Receive Date: 20091023
  Receipt Date: 20091013
  Transmission Date: 20100525
  Serious: Yes (Other)
  Sender: FDA-Public Use
  Company Number: PHHY2009FR44728

PATIENT
  Age: 17 Year
  Sex: Female

DRUGS (2)
  1. SANDIMMUNE [Suspect]
     Indication: ENTEROCOLITIS HAEMORRHAGIC
     Dosage: 1 DF, ONCE/SINGLE
     Dates: start: 20090909
  2. NEORAL [Concomitant]

REACTIONS (6)
  - COUGH [None]
  - DIZZINESS [None]
  - DYSAESTHESIA [None]
  - DYSPNOEA [None]
  - RASH GENERALISED [None]
  - SKIN BURNING SENSATION [None]
